FAERS Safety Report 12567265 (Version 1)
Quarter: 2016Q3

REPORT INFORMATION
  Report Type: Spontaneous
  Country: US (occurrence: US)
  Receive Date: 20160718
  Receipt Date: 20160718
  Transmission Date: 20161109
  Serious: No
  Sender: FDA-Public Use
  Company Number: US-ASTELLAS-2016US018607

PATIENT
  Sex: Female

DRUGS (1)
  1. MYRBETRIQ [Suspect]
     Active Substance: MIRABEGRON
     Indication: PRODUCT USED FOR UNKNOWN INDICATION
     Route: 065

REACTIONS (9)
  - Drug effect incomplete [Unknown]
  - Vision blurred [Not Recovered/Not Resolved]
  - Peripheral swelling [Recovered/Resolved]
  - Fall [Recovered/Resolved]
  - Dry mouth [Recovered/Resolved]
  - Dizziness postural [Recovered/Resolved]
  - Thirst [Recovered/Resolved]
  - Headache [Recovered/Resolved]
  - Balance disorder [Not Recovered/Not Resolved]
